FAERS Safety Report 20086672 (Version 2)
Quarter: 2025Q2

REPORT INFORMATION
  Report Type: Spontaneous
  Country: CA (occurrence: CA)
  Receive Date: 20211118
  Receipt Date: 20250619
  Transmission Date: 20250717
  Serious: Yes (Hospitalization)
  Sender: ORGANON
  Company Number: CA-ORGANON-O2111CAN000918

PATIENT
  Age: 86 Year
  Sex: Female

DRUGS (10)
  1. MIRTAZAPINE [Suspect]
     Active Substance: MIRTAZAPINE
     Indication: Affect lability
     Dosage: 30 MILLIGRAM, 1 EVERY 1 DAY (QD)
     Route: 065
  2. FLUOXETINE [Suspect]
     Active Substance: FLUOXETINE HYDROCHLORIDE
     Indication: Affect lability
     Dosage: 10 MILLIGRAM, 1 EVERY 1 DAY (QD)
     Route: 065
  3. OXAZEPAM [Suspect]
     Active Substance: OXAZEPAM
     Indication: Affect lability
     Dosage: 5 MILLIGRAM, 2 EVERY 1 DAY (BID)
     Route: 065
  4. PAROXETINE [Suspect]
     Active Substance: PAROXETINE
     Indication: Affect lability
     Dosage: 15 MILLIGRAM, 1 EVERY 1 DAY (QD)
     Route: 065
  5. SERTRALINE [Suspect]
     Active Substance: SERTRALINE HYDROCHLORIDE
     Indication: Affect lability
     Dosage: 50 MILLIGRAM, 1 EVERY 1 DAY (QD)
     Route: 065
  6. AMLODIPINE [Concomitant]
     Active Substance: AMLODIPINE BESYLATE
     Indication: Product used for unknown indication
     Dosage: 2.5 MILLIGRAM, 1 EVERY 1 DAY (QD)
     Route: 065
  7. CALCIUM PHOSPHATE;CALCIUM SODIUM LACTATE;ERGOCALCIFEROL [Concomitant]
     Indication: Product used for unknown indication
     Route: 065
  8. SINEMET [Concomitant]
     Active Substance: CARBIDOPA\LEVODOPA
     Indication: Parkinsonism
     Dosage: 50 MILLIGRAM, 2 EVERY ONE DAY (BID)
     Route: 065
  9. QUETIAPINE [Concomitant]
     Active Substance: QUETIAPINE
     Indication: Product used for unknown indication
     Route: 065
  10. VENLAFAXINE [Concomitant]
     Active Substance: VENLAFAXINE HYDROCHLORIDE
     Indication: Product used for unknown indication
     Dosage: 75 MILLIGRAM, 1 EVERY 1 DAY (QD)
     Route: 065

REACTIONS (2)
  - Akathisia [Unknown]
  - Off label use [Unknown]
